APPROVED DRUG PRODUCT: NABUMETONE
Active Ingredient: NABUMETONE
Strength: 750MG
Dosage Form/Route: TABLET;ORAL
Application: A203166 | Product #002 | TE Code: AB
Applicant: LGM PHARMA SOLUTIONS LLC
Approved: Aug 30, 2019 | RLD: No | RS: No | Type: RX